FAERS Safety Report 24138282 (Version 4)
Quarter: 2025Q2

REPORT INFORMATION
  Report Type: Spontaneous
  Country: FR (occurrence: FR)
  Receive Date: 20240725
  Receipt Date: 20250603
  Transmission Date: 20250716
  Serious: No
  Sender: PFIZER
  Company Number: FR-PFIZER INC-PV202400096212

PATIENT
  Age: 12 Year
  Sex: Female

DRUGS (2)
  1. NGENLA [Suspect]
     Active Substance: SOMATROGON-GHLA
     Dosage: 22.5 MG, WEEKLY
     Route: 058
     Dates: start: 20241024
  2. NGENLA [Suspect]
     Active Substance: SOMATROGON-GHLA
     Dosage: 30 MG, WEEKLY
     Route: 058

REACTIONS (5)
  - Injection site pain [Recovered/Resolved]
  - Loss of personal independence in daily activities [Recovered/Resolved]
  - Injection site inflammation [Unknown]
  - Increased appetite [Unknown]
  - Product dose omission in error [Unknown]
